FAERS Safety Report 23348893 (Version 1)
Quarter: 2023Q4

REPORT INFORMATION
  Report Type: Spontaneous
  Country: NL (occurrence: NL)
  Receive Date: 20231229
  Receipt Date: 20231229
  Transmission Date: 20240110
  Serious: Yes (Other)
  Sender: FDA-Public Use
  Company Number: None

PATIENT

DRUGS (2)
  1. CUTIVATE [Suspect]
     Active Substance: FLUTICASONE PROPIONATE
     Indication: Eczema
     Dosage: 1 DF (FACE IF NECESSARY)
     Route: 065
     Dates: start: 20180820, end: 20210918
  2. EBASTINE [Concomitant]
     Active Substance: EBASTINE
     Indication: Product used for unknown indication
     Dosage: 5 MG
     Route: 065

REACTIONS (9)
  - Steroid withdrawal syndrome [Recovering/Resolving]
  - Poor quality sleep [Recovering/Resolving]
  - Adrenal disorder [Recovering/Resolving]
  - Skin exfoliation [Recovering/Resolving]
  - Skin swelling [Recovering/Resolving]
  - Erythema [Recovering/Resolving]
  - Hypotension [Recovering/Resolving]
  - Dry skin [Recovering/Resolving]
  - Fatigue [Recovering/Resolving]
